FAERS Safety Report 8401419-4 (Version None)
Quarter: 2012Q2

REPORT INFORMATION
  Report Type: 
  Country: None (occurrence: None)
  Receive Date: 20120601
  Receipt Date: 20120529
  Transmission Date: 20120825
  Serious: Yes (Other)
  Sender: FDA-Public Use
  Company Number: PHEH2007US01095

PATIENT
  Sex: Female

DRUGS (18)
  1. AREDIA [Suspect]
     Indication: RESORPTION BONE INCREASED
  2. ZOMETA [Suspect]
     Indication: BREAST CANCER METASTATIC
     Route: 042
     Dates: start: 20020101, end: 20050101
  3. PLAVIX [Concomitant]
     Dosage: 75 MG, QD
  4. ASPIRIN [Concomitant]
     Dosage: 81 MG, QD
  5. COLACE [Concomitant]
     Dosage: 100 MG, TID
  6. AREDIA [Suspect]
     Indication: HYPERCALCAEMIA
  7. KEFLEX [Concomitant]
     Dosage: 500 MG,
  8. PERCOCET [Concomitant]
  9. TOPROL-XL [Concomitant]
     Dosage: 50 MG, BID
  10. SENOKOT [Concomitant]
  11. NITROGLYCERIN [Concomitant]
     Dosage: 0.2 MG,
  12. AREDIA [Suspect]
     Indication: METASTASES TO BONE
     Route: 042
     Dates: start: 19990101, end: 20020101
  13. ZOMETA [Suspect]
     Indication: RESORPTION BONE INCREASED
  14. ACETAMINOPHEN [Concomitant]
  15. AROMASIN [Concomitant]
     Dosage: 25 MG,
  16. OXYCONTIN [Concomitant]
  17. MEGACE [Concomitant]
  18. MEGESTROL ACETATE [Concomitant]

REACTIONS (13)
  - INJURY [None]
  - EMOTIONAL DISTRESS [None]
  - PERIODONTAL DISEASE [None]
  - PLEURAL EFFUSION [None]
  - OSTEONECROSIS OF JAW [None]
  - TACHYCARDIA [None]
  - DECREASED INTEREST [None]
  - GINGIVITIS [None]
  - GINGIVAL BLEEDING [None]
  - PAIN [None]
  - METASTASES TO BONE [None]
  - CHEST PAIN [None]
  - BUNDLE BRANCH BLOCK LEFT [None]
